FAERS Safety Report 9256761 (Version 3)
Quarter: 2013Q4

REPORT INFORMATION
  Report Type: Spontaneous
  Country: US (occurrence: US)
  Receive Date: 20130426
  Receipt Date: 20131018
  Transmission Date: 20140711
  Serious: Yes (Hospitalization, Other)
  Sender: FDA-Public Use
  Company Number: US-ASTRAZENECA-2013SE27594

PATIENT
  Age: 83 Year
  Sex: Female
  Weight: 65.8 kg

DRUGS (28)
  1. NEXIUM [Suspect]
     Indication: GASTROOESOPHAGEAL REFLUX DISEASE
     Route: 048
  2. NEXIUM [Suspect]
     Indication: HIATUS HERNIA
     Route: 048
  3. NEXIUM [Suspect]
     Indication: GASTROOESOPHAGEAL REFLUX DISEASE
     Route: 048
     Dates: start: 20040204, end: 2011
  4. NEXIUM [Suspect]
     Indication: HIATUS HERNIA
     Route: 048
     Dates: start: 20040204, end: 2011
  5. MAALOX [Concomitant]
     Indication: GASTROOESOPHAGEAL REFLUX DISEASE
     Dosage: AS NEEDED
     Dates: start: 2004, end: 2011
  6. ALKASELTZER [Concomitant]
     Indication: GASTROOESOPHAGEAL REFLUX DISEASE
     Dosage: AS NEEDED
     Dates: start: 2004, end: 2011
  7. ZANTAC [Concomitant]
     Indication: GASTROOESOPHAGEAL REFLUX DISEASE
     Dates: start: 2004, end: 2011
  8. ZANTAC [Concomitant]
     Indication: HIATUS HERNIA
     Dates: start: 2004, end: 2011
  9. PEPCID [Concomitant]
     Indication: GASTROOESOPHAGEAL REFLUX DISEASE
     Dates: start: 2004, end: 2011
  10. PEPCID [Concomitant]
     Indication: HIATUS HERNIA
     Dates: start: 2004, end: 2011
  11. MILK OF MAGNESIA [Concomitant]
     Indication: GASTROOESOPHAGEAL REFLUX DISEASE
     Dosage: AS NEEDED
     Dates: start: 2004, end: 2011
  12. GAVISCON [Concomitant]
     Indication: GASTROOESOPHAGEAL REFLUX DISEASE
     Dosage: AS NEEDED
     Dates: start: 2004, end: 2011
  13. COLONSPAM [Concomitant]
  14. AMBIEN [Concomitant]
  15. VITAMIN D [Concomitant]
  16. ZINC [Concomitant]
  17. IRON [Concomitant]
  18. TEGRATOL [Concomitant]
  19. DEPACOTE [Concomitant]
  20. REGUIP [Concomitant]
  21. PROTONIX [Concomitant]
  22. CLARINEX [Concomitant]
     Dates: start: 20040204
  23. ALLOPURINOL [Concomitant]
     Dates: start: 20040204
  24. INDERAL [Concomitant]
     Dates: start: 20040204
  25. TRAZADONE [Concomitant]
     Dates: start: 20040204
  26. PRAVACHOL [Concomitant]
     Dates: start: 20040204
  27. ESTROPIPATE [Concomitant]
     Dates: start: 20040204
  28. PLASUIT [Concomitant]

REACTIONS (21)
  - Myoclonic epilepsy [Unknown]
  - Hip fracture [Unknown]
  - Fall [Unknown]
  - Cerebrovascular accident [Unknown]
  - Chest pain [Unknown]
  - Femur fracture [Unknown]
  - Osteoporosis [Unknown]
  - Wrist fracture [Unknown]
  - Bone disorder [Unknown]
  - Hand fracture [Unknown]
  - Cataract [Unknown]
  - Cardiovascular disorder [Unknown]
  - Dyskinesia [Unknown]
  - Lower limb fracture [Unknown]
  - Osteopenia [Unknown]
  - Foot fracture [Unknown]
  - Scoliosis [Unknown]
  - Intervertebral disc degeneration [Unknown]
  - Dystrophic calcification [Unknown]
  - Osteoarthritis [Unknown]
  - Depression [Unknown]
